FAERS Safety Report 22235443 (Version 1)
Quarter: 2023Q2

REPORT INFORMATION
  Report Type: Spontaneous
  Country: US (occurrence: None)
  Receive Date: 20230419
  Receipt Date: 20230419
  Transmission Date: 20230722
  Serious: No
  Sender: FDA-Public Use
  Company Number: None

PATIENT
  Age: 87 Year
  Sex: Female

DRUGS (1)
  1. COSENTYX [Suspect]
     Active Substance: SECUKINUMAB
     Indication: Psoriasis
     Dosage: OTHER FREQUENCY : WKLYFOR2,3+4ASDIR;?
     Route: 058
     Dates: start: 202109

REACTIONS (4)
  - Oropharyngeal pain [None]
  - Diarrhoea [None]
  - Flatulence [None]
  - Pyrexia [None]
